FAERS Safety Report 5579909-1 (Version None)
Quarter: 2008Q1

REPORT INFORMATION
  Report Type: 
  Country: None (occurrence: None)
  Receive Date: 20080103
  Receipt Date: 20071218
  Transmission Date: 20080703
  Serious: Yes (Death)
  Sender: FDA-Public Use
  Company Number: JP-BAYER-200711055BYL

PATIENT
  Age: 76 Year
  Sex: Male

DRUGS (8)
  1. CIPROXAN-I.V. [Suspect]
     Indication: PNEUMONIA
     Dosage: TOTAL DAILY DOSE: 600 MG  UNIT DOSE: 300 MG
     Route: 041
     Dates: start: 20071029, end: 20071102
  2. UNASYN [Concomitant]
     Indication: PNEUMONIA
     Dosage: TOTAL DAILY DOSE: 6 G
     Route: 042
     Dates: start: 20071023, end: 20071024
  3. TIENAM [Concomitant]
     Indication: PNEUMONIA
     Dosage: TOTAL DAILY DOSE: 1.0 G
     Route: 042
     Dates: start: 20071024, end: 20071029
  4. CLARITHROMYCIN [Concomitant]
     Indication: PNEUMONIA
     Dosage: TOTAL DAILY DOSE: 400 MG
     Route: 048
     Dates: start: 20071024, end: 20071028
  5. ARTIST [Concomitant]
     Dosage: TOTAL DAILY DOSE: 10 MG
     Route: 048
     Dates: start: 20071029, end: 20071101
  6. TAKEPRON [Concomitant]
     Dosage: TOTAL DAILY DOSE: 15 MG
     Route: 048
     Dates: start: 20071029, end: 20071101
  7. SOLU-MEDROL [Concomitant]
     Dosage: TOTAL DAILY DOSE: 500 MG
     Route: 042
     Dates: start: 20071030, end: 20071101
  8. PREDONINE [Concomitant]
     Dosage: TOTAL DAILY DOSE: 60 MG
     Route: 042
     Dates: start: 20071102, end: 20071102

REACTIONS (1)
  - RESPIRATORY FAILURE [None]
